FAERS Safety Report 13110547 (Version 1)
Quarter: 2017Q1

REPORT INFORMATION
  Report Type: Spontaneous
  Country: US (occurrence: US)
  Receive Date: 20170112
  Receipt Date: 20170112
  Transmission Date: 20170428
  Serious: Yes (Other)
  Sender: FDA-Public Use
  Company Number: US-ROCHE-1097890

PATIENT
  Age: 51 Year
  Sex: Male

DRUGS (7)
  1. NIFEDIPINE. [Concomitant]
     Active Substance: NIFEDIPINE
     Route: 060
     Dates: start: 19900429
  2. NITROGLYCERINE [Concomitant]
     Active Substance: NITROGLYCERIN
     Dosage: TITRATED TO APPROXIMATELY 100 TO 145 MICS.
     Route: 042
     Dates: start: 19900429
  3. NITROGLYCERINE [Concomitant]
     Active Substance: NITROGLYCERIN
     Dosage: INCREASED TO 145 TO 150 MICS.
     Route: 042
  4. NITROGLYCERINE [Concomitant]
     Active Substance: NITROGLYCERIN
     Dosage: TITRATED BACK TO 135 MICS.
     Route: 042
  5. STREPTOKINASE [Concomitant]
     Active Substance: STREPTOKINASE
     Route: 065
     Dates: start: 19900429
  6. ACTIVASE [Suspect]
     Active Substance: ALTEPLASE
     Indication: ACUTE MYOCARDIAL INFARCTION
     Route: 065
     Dates: start: 19900429
  7. MORPHINE SULFATE. [Concomitant]
     Active Substance: MORPHINE SULFATE
     Dosage: INCREMENTS OF 2 TO 3 MG
     Route: 065
     Dates: start: 19900429

REACTIONS (4)
  - Ventricular extrasystoles [Unknown]
  - Ventricular tachycardia [Unknown]
  - Arrhythmia [Unknown]
  - Ventricular fibrillation [Recovered/Resolved]

NARRATIVE: CASE EVENT DATE: 19900429
